FAERS Safety Report 14952554 (Version 1)
Quarter: 2018Q2

REPORT INFORMATION
  Report Type: Spontaneous
  Country: DE (occurrence: DE)
  Receive Date: 20180530
  Receipt Date: 20180530
  Transmission Date: 20180711
  Serious: Yes (Hospitalization)
  Sender: FDA-Public Use
  Company Number: DE-PFIZER INC-2018213909

PATIENT
  Sex: Female

DRUGS (1)
  1. NORVASC [Suspect]
     Active Substance: AMLODIPINE BESYLATE
     Indication: HYPERTENSION

REACTIONS (3)
  - Gastrooesophageal reflux disease [Unknown]
  - Dyspepsia [Unknown]
  - Oesophagitis [Unknown]

NARRATIVE: CASE EVENT DATE: 2016
